FAERS Safety Report 6734621-8 (Version None)
Quarter: 2010Q2

REPORT INFORMATION
  Report Type: 
  Country: None (occurrence: None)
  Receive Date: 20100520
  Receipt Date: 20100512
  Transmission Date: 20101027
  Serious: Yes (Hospitalization, Other)
  Sender: FDA-Public Use
  Company Number: BR-GENENTECH-296524

PATIENT
  Sex: Female
  Weight: 58 kg

DRUGS (3)
  1. MABTHERA [Suspect]
     Indication: JUVENILE ARTHRITIS
     Dosage: 1000 MG/ML, Q15D
     Route: 042
     Dates: start: 20091118, end: 20091202
  2. PREDNISONE TAB [Concomitant]
     Indication: DRUG USE FOR UNKNOWN INDICATION
     Dosage: 5 MG, UNK
  3. ARAVA [Concomitant]
     Indication: DRUG USE FOR UNKNOWN INDICATION
     Dosage: 20 MG, UNK

REACTIONS (13)
  - BLOOD CREATININE INCREASED [None]
  - BLOOD UREA INCREASED [None]
  - CARDIOMEGALY [None]
  - DYSPNOEA EXERTIONAL [None]
  - FATIGUE [None]
  - GENERALISED OEDEMA [None]
  - HYPERSENSITIVITY [None]
  - INSOMNIA [None]
  - MALAISE [None]
  - PYREXIA [None]
  - RENAL FAILURE [None]
  - SYSTEMIC LUPUS ERYTHEMATOSUS [None]
  - URTICARIA [None]
